FAERS Safety Report 4980494-3 (Version None)
Quarter: 2006Q2

REPORT INFORMATION
  Report Type: 
  Country: None (occurrence: None)
  Receive Date: 20060424
  Receipt Date: 20060331
  Transmission Date: 20061013
  Serious: Yes (Hospitalization, Other)
  Sender: FDA-Public Use
  Company Number: PL-JNJFOC-20050204189

PATIENT
  Sex: Male
  Weight: 70 kg

DRUGS (9)
  1. REMICADE [Suspect]
     Route: 042
  2. REMICADE [Suspect]
     Route: 042
  3. REMICADE [Suspect]
     Route: 042
  4. REMICADE [Suspect]
     Route: 042
  5. REMICADE [Suspect]
     Route: 042
  6. REMICADE [Suspect]
     Indication: CROHN'S DISEASE
     Route: 042
  7. MESALAZINE [Concomitant]
  8. METRONIDAZOLE [Concomitant]
  9. ANTAZOLINE [Concomitant]

REACTIONS (3)
  - CROHN'S DISEASE [None]
  - DISSEMINATED TUBERCULOSIS [None]
  - TONSILLITIS [None]
